FAERS Safety Report 23762815 (Version 2)
Quarter: 2024Q2

REPORT INFORMATION
  Report Type: Spontaneous
  Country: JP (occurrence: JP)
  Receive Date: 20240419
  Receipt Date: 20240502
  Transmission Date: 20240716
  Serious: Yes (Other)
  Sender: FDA-Public Use
  Company Number: JP-UCBJ-CD202403199UCBPHAPROD

PATIENT
  Age: 85 Year
  Sex: Female

DRUGS (1)
  1. VIMPAT [Suspect]
     Active Substance: LACOSAMIDE
     Indication: Epilepsy
     Dosage: 400 MILLIGRAM, PER DAY
     Route: 048

REACTIONS (3)
  - Depressed level of consciousness [Unknown]
  - Coma [Not Recovered/Not Resolved]
  - Hepatic function abnormal [Unknown]
